FAERS Safety Report 20380818 (Version 2)
Quarter: 2022Q1

REPORT INFORMATION
  Report Type: Report from Study
  Country: GB (occurrence: GB)
  Receive Date: 20220127
  Receipt Date: 20220222
  Transmission Date: 20220424
  Serious: No
  Sender: FDA-Public Use
  Company Number: GB-SA-2019SA173480

PATIENT
  Age: 39 Year
  Sex: Male

DRUGS (1)
  1. DUPILUMAB [Suspect]
     Active Substance: DUPILUMAB
     Indication: Dermatitis atopic
     Dosage: 300 MG
     Route: 058
     Dates: start: 201903

REACTIONS (3)
  - Eye pain [Unknown]
  - Dry eye [Not Recovered/Not Resolved]
  - Injection site pain [Unknown]
